FAERS Safety Report 15490860 (Version 2)
Quarter: 2018Q4

REPORT INFORMATION
  Report Type: Report from Study
  Country: US (occurrence: US)
  Receive Date: 20181011
  Receipt Date: 20181112
  Transmission Date: 20190205
  Serious: Yes (Hospitalization)
  Sender: FDA-Public Use
  Company Number: US-BEH-2018095565

PATIENT
  Age: 75 Year
  Sex: Female
  Weight: 59.5 kg

DRUGS (2)
  1. ELIQUIS [Concomitant]
     Active Substance: APIXABAN
     Indication: PRODUCT USED FOR UNKNOWN INDICATION
  2. ZEMAIRA [Suspect]
     Active Substance: .ALPHA.1-PROTEINASE INHIBITOR HUMAN
     Indication: ALPHA-1 ANTI-TRYPSIN DEFICIENCY
     Dosage: 3828 MG, QW
     Route: 042
     Dates: start: 20151015

REACTIONS (5)
  - Muscular weakness [Unknown]
  - Vaginal haemorrhage [Unknown]
  - Urinary tract infection [Unknown]
  - Asthenia [Unknown]
  - Fall [Unknown]
